FAERS Safety Report 10576400 (Version 1)
Quarter: 2014Q4

REPORT INFORMATION
  Report Type: Spontaneous
  Country: US (occurrence: None)
  Receive Date: 20141110
  Receipt Date: 20141110
  Transmission Date: 20150529
  Serious: Yes (Disabling, Other)
  Sender: FDA-Public Use
  Company Number: None

PATIENT
  Age: 25 Year
  Sex: Male
  Weight: 92.99 kg

DRUGS (1)
  1. CIPROFLOXACIN. [Suspect]
     Active Substance: CIPROFLOXACIN
     Indication: DIVERTICULITIS
     Route: 048
     Dates: start: 20141010, end: 20141015

REACTIONS (9)
  - Depression [None]
  - Fear [None]
  - Tremor [None]
  - Panic attack [None]
  - Tinnitus [None]
  - Palpitations [None]
  - Dyspnoea [None]
  - Anxiety [None]
  - Vision blurred [None]

NARRATIVE: CASE EVENT DATE: 20141103
